FAERS Safety Report 12904687 (Version 1)
Quarter: 2016Q4

REPORT INFORMATION
  Report Type: Report from Study
  Country: US (occurrence: US)
  Receive Date: 20161102
  Receipt Date: 20161102
  Transmission Date: 20170207
  Serious: Yes (Other)
  Sender: FDA-Public Use
  Company Number: US-MALLINCKRODT-T201605337

PATIENT
  Age: 63 Year
  Sex: Female

DRUGS (1)
  1. REPOSITORY CORTICOTROPIN INJECTION [Suspect]
     Active Substance: CORTICOTROPIN
     Indication: SARCOIDOSIS
     Dosage: 40U/0.5ML EVERY 3 DAYS
     Route: 058
     Dates: start: 20160427

REACTIONS (1)
  - Haemangioma [Recovering/Resolving]

NARRATIVE: CASE EVENT DATE: 20161016
